FAERS Safety Report 13381455 (Version 1)
Quarter: 2017Q1

REPORT INFORMATION
  Report Type: Report from Study
  Country: US (occurrence: US)
  Receive Date: 20170329
  Receipt Date: 20170329
  Transmission Date: 20170429
  Serious: Yes (Other)
  Sender: FDA-Public Use
  Company Number: US-BRISTOL-MYERS SQUIBB COMPANY-BMS-2017-024768

PATIENT
  Age: 45 Year
  Sex: Male

DRUGS (2)
  1. REXULTI [Suspect]
     Active Substance: BREXPIPRAZOLE
     Indication: SCHIZOPHRENIA
     Dosage: UNK
     Route: 065
  2. ARIPIPRAZOLE. [Suspect]
     Active Substance: ARIPIPRAZOLE
     Indication: SCHIZOPHRENIA
     Dosage: 1 DF, UNK
     Route: 065

REACTIONS (13)
  - Schizophrenia [Unknown]
  - Parkinsonism [Unknown]
  - Blood prolactin abnormal [Unknown]
  - Tremor [Unknown]
  - Cogwheel rigidity [Unknown]
  - Suicide attempt [Unknown]
  - Drooling [Unknown]
  - Personality disorder [Unknown]
  - Sedation [Unknown]
  - Therapeutic response decreased [Unknown]
  - Drug ineffective [Unknown]
  - Akathisia [Unknown]
  - Sexual dysfunction [Unknown]
